FAERS Safety Report 7093273-0 (Version None)
Quarter: 2010Q4

REPORT INFORMATION
  Report Type: 
  Country: None (occurrence: None)
  Receive Date: 20101110
  Receipt Date: 20101029
  Transmission Date: 20110411
  Serious: Yes (Other)
  Sender: FDA-Public Use
  Company Number: US-RB-017906-10

PATIENT
  Sex: Female

DRUGS (3)
  1. SUBOXONE [Suspect]
     Indication: PRODUCT USED FOR UNKNOWN INDICATION
     Dosage: DOSING DETAILS UNKNOWN
     Route: 065
  2. REDIPEN PEG-INTRON [Concomitant]
     Indication: HEPATITIS C
     Dosage: DOSING DETAILS UNKNOWN
     Route: 065
     Dates: start: 20100813
  3. RIBASPHERE [Concomitant]
     Indication: HEPATITIS C
     Dosage: DOSING DETAILS UNKNOWN
     Route: 065
     Dates: start: 20100813

REACTIONS (10)
  - ABNORMAL BEHAVIOUR [None]
  - ACCIDENTAL OVERDOSE [None]
  - AMNESIA [None]
  - ANGER [None]
  - DEPRESSION [None]
  - IRRITABILITY [None]
  - LOSS OF CONSCIOUSNESS [None]
  - MIGRAINE [None]
  - SOMNAMBULISM [None]
  - STRESS [None]
